FAERS Safety Report 7409715-4 (Version None)
Quarter: 2011Q2

REPORT INFORMATION
  Report Type: 
  Country: None (occurrence: None)
  Receive Date: 20110412
  Receipt Date: 20110401
  Transmission Date: 20111010
  Serious: Yes (Life-Threatening, Hospitalization)
  Sender: FDA-Public Use
  Company Number: GB-BRACCO-000346

PATIENT
  Sex: Female

DRUGS (10)
  1. NITROGLYCERIN [Concomitant]
     Dosage: FORM: SPRAY
  2. DIHYDROCODEINE BITARTRATE INJ [Concomitant]
  3. LANSOPRAZOLE [Concomitant]
  4. MULTIHANCE [Suspect]
     Indication: NUCLEAR MAGNETIC RESONANCE IMAGING
     Dosage: DOSE: 0.5M
     Route: 042
     Dates: start: 20110202, end: 20110202
  5. METOPROLOL TARTRATE [Concomitant]
  6. EZETIMIBE [Concomitant]
  7. QUININE SULFATE [Concomitant]
  8. ATORVASTATIN [Concomitant]
  9. ASPIRIN [Concomitant]
  10. LISINOPRIL [Concomitant]

REACTIONS (2)
  - ANAPHYLACTIC REACTION [None]
  - CARDIAC ARREST [None]
